FAERS Safety Report 25760831 (Version 1)
Quarter: 2025Q3

REPORT INFORMATION
  Report Type: Report from Study
  Country: EU (occurrence: EU)
  Receive Date: 20250904
  Receipt Date: 20250904
  Transmission Date: 20251020
  Serious: Yes (Other)
  Sender: GALPHARM INTERNATIONAL
  Company Number: EU-PERRIGO-25HU010424

PATIENT
  Age: 27 Year
  Sex: Female
  Weight: 171 kg

DRUGS (2)
  1. ULIPRISTAL ACETATE [Suspect]
     Active Substance: ULIPRISTAL ACETATE
     Indication: Post coital contraception
     Route: 048
     Dates: start: 20250410, end: 20250410
  2. NEBIVOLOL HYDROCHLORIDE [Concomitant]
     Active Substance: NEBIVOLOL HYDROCHLORIDE
     Indication: Tachycardia
     Dosage: 0.5 TABLET
     Route: 048

REACTIONS (3)
  - Pregnancy after post coital contraception [Recovered/Resolved]
  - Abortion spontaneous [Recovered/Resolved]
  - Vaginal haemorrhage [Recovered/Resolved]

NARRATIVE: CASE EVENT DATE: 20250526
